FAERS Safety Report 19033761 (Version 1)
Quarter: 2021Q1

REPORT INFORMATION
  Report Type: Spontaneous
  Country: US (occurrence: US)
  Receive Date: 20210319
  Receipt Date: 20210319
  Transmission Date: 20210420
  Serious: Yes (Hospitalization)
  Sender: FDA-Public Use
  Company Number: US-ALLERGAN-2111513US

PATIENT
  Sex: Female

DRUGS (1)
  1. NAMENDA [Suspect]
     Active Substance: MEMANTINE HYDROCHLORIDE
     Indication: PRODUCT USED FOR UNKNOWN INDICATION
     Dosage: 10 MG, QD
     Route: 048
     Dates: start: 20210304, end: 20210308

REACTIONS (9)
  - Muscular weakness [Not Recovered/Not Resolved]
  - Balance disorder [Not Recovered/Not Resolved]
  - Blood pressure increased [Recovered/Resolved]
  - Speech disorder [Not Recovered/Not Resolved]
  - Incorrect dose administered [Unknown]
  - Tremor [Not Recovered/Not Resolved]
  - Asthenia [Not Recovered/Not Resolved]
  - Coma [Recovering/Resolving]
  - Unresponsive to stimuli [Recovering/Resolving]

NARRATIVE: CASE EVENT DATE: 20210304
